FAERS Safety Report 6478512-9 (Version None)
Quarter: 2009Q4

REPORT INFORMATION
  Report Type: 
  Country: None (occurrence: None)
  Receive Date: 20091207
  Receipt Date: 20091202
  Transmission Date: 20100525
  Serious: Yes (Other)
  Sender: FDA-Public Use
  Company Number: HQWYE302209FEB07

PATIENT
  Age: 9 Year
  Sex: Male

DRUGS (8)
  1. SIROLIMUS [Suspect]
     Indication: PROPHYLAXIS AGAINST GRAFT VERSUS HOST DISEASE
     Dosage: 2.5MG/M2, MAX 4MG DAILY, TARGET LEVEL 3-12NG/ML THEN DOSE TAPERED AT SIX MONTHS
     Route: 048
  2. SIROLIMUS [Suspect]
     Indication: IMMUNOSUPPRESSANT DRUG THERAPY
  3. SIROLIMUS [Suspect]
     Indication: STEM CELL TRANSPLANT
  4. SIROLIMUS [Suspect]
     Indication: ACUTE LYMPHOCYTIC LEUKAEMIA
  5. CYCLOPHOSPHAMIDE [Concomitant]
     Dosage: 60MG/KG/D (TOTAL DOSE 120MG/KG)
     Route: 065
  6. THIOTEPA [Concomitant]
     Dosage: 5MG/KG/D (TOTAL DOSE 10MG/KG)
     Route: 065
  7. TACROLIMUS [Concomitant]
     Dosage: STARTING ON DAY -2 (STARTING DOSE 0.03MG/KG D) TARGET LEVEL 5-10 NG/ML; THEN DOSE TAPERED
     Route: 042
  8. METHOTREXATE [Concomitant]
     Dosage: 5MG/M2 ON DAYS +1, +3 AND +6 AFTER TRANSPLANT
     Route: 042

REACTIONS (1)
  - VENOOCCLUSIVE DISEASE [None]
